FAERS Safety Report 18383629 (Version 3)
Quarter: 2020Q4

REPORT INFORMATION
  Report Type: Spontaneous
  Country: US (occurrence: US)
  Receive Date: 20201014
  Receipt Date: 20201204
  Transmission Date: 20210114
  Serious: No
  Sender: FDA-Public Use
  Company Number: US-ASTRAZENECA-2020SF31157

PATIENT
  Sex: Male
  Weight: 65.3 kg

DRUGS (1)
  1. BYDUREON BCISE [Suspect]
     Active Substance: EXENATIDE
     Indication: TYPE 2 DIABETES MELLITUS
     Route: 065

REACTIONS (9)
  - Product colour issue [Unknown]
  - Device malfunction [Unknown]
  - Hunger [Unknown]
  - Fatigue [Unknown]
  - Incorrect dose administered by device [Unknown]
  - Intentional device misuse [Unknown]
  - Dry mouth [Unknown]
  - Injury associated with device [Unknown]
  - Injection site haemorrhage [Recovered/Resolved]
